FAERS Safety Report 10378604 (Version 3)
Quarter: 2020Q1

REPORT INFORMATION
  Report Type: Report from Study
  Country: US (occurrence: US)
  Receive Date: 20140812
  Receipt Date: 20200319
  Transmission Date: 20200409
  Serious: Yes (Hospitalization)
  Sender: FDA-Public Use
  Company Number: US-SA-2014SA107531

PATIENT
  Age: 56 Year
  Sex: Male
  Weight: 98.8 kg

DRUGS (2)
  1. INSULIN GLARGINE [Suspect]
     Active Substance: INSULIN GLARGINE
     Dosage: UNK
  2. INSULIN GLARGINE [Suspect]
     Active Substance: INSULIN GLARGINE
     Indication: DIABETES MELLITUS
     Dosage: 35 DF,QD
     Dates: start: 20130328, end: 20131117

REACTIONS (6)
  - Impaired driving ability [Unknown]
  - Surgery [Unknown]
  - Vascular operation [Unknown]
  - Nephrectomy [Unknown]
  - Hypoaesthesia [Unknown]
  - Blood glucose increased [Unknown]

NARRATIVE: CASE EVENT DATE: 2019
